FAERS Safety Report 16651915 (Version 1)
Quarter: 2019Q3

REPORT INFORMATION
  Report Type: Spontaneous
  Country: US (occurrence: US)
  Receive Date: 20190731
  Receipt Date: 20190731
  Transmission Date: 20191004
  Serious: No
  Sender: FDA-Public Use
  Company Number: US-PFIZER INC-2019323413

PATIENT
  Age: 75 Year
  Sex: Female

DRUGS (1)
  1. ESTRADIOL. [Suspect]
     Active Substance: ESTRADIOL
     Indication: OSTEOPENIA
     Dosage: 0.5 MG, 1X/DAY
     Dates: start: 20160305

REACTIONS (2)
  - Urticaria [Unknown]
  - Drug eruption [Unknown]
